FAERS Safety Report 4929444-6 (Version None)
Quarter: 2006Q1

REPORT INFORMATION
  Report Type: 
  Country: None (occurrence: None)
  Receive Date: 20060301
  Receipt Date: 20060215
  Transmission Date: 20060701
  Serious: Yes (Death, Hospitalization)
  Sender: FDA-Public Use
  Company Number: CA-AMGEN-US169242

PATIENT
  Sex: Female

DRUGS (9)
  1. ENBREL [Suspect]
     Indication: RHEUMATOID ARTHRITIS
     Route: 058
     Dates: start: 20031117, end: 20060203
  2. PREDNISONE [Concomitant]
     Dates: start: 20010101, end: 20060203
  3. PLAQUENIL [Concomitant]
     Dates: start: 20020116, end: 20060203
  4. FOSAMAX [Concomitant]
     Dates: end: 20060203
  5. FOSAMAX [Concomitant]
     Dates: start: 20010101
  6. LASIX [Concomitant]
     Dates: start: 20010101, end: 20060203
  7. SLOW-K [Concomitant]
     Dates: start: 20010101, end: 20060203
  8. TYLENOL W/ CODEINE NO. 3 [Concomitant]
     Dates: start: 20050101, end: 20060203
  9. DILAUDID [Concomitant]
     Dates: start: 20050101, end: 20060203

REACTIONS (3)
  - METASTASES TO LIVER [None]
  - PANCREATIC CARCINOMA [None]
  - PANCREATIC CARCINOMA METASTATIC [None]
